FAERS Safety Report 4579512-6 (Version None)
Quarter: 2005Q1

REPORT INFORMATION
  Report Type: 
  Country: None (occurrence: None)
  Receive Date: 20050209
  Receipt Date: 20050121
  Transmission Date: 20050727
  Serious: Yes (Death)
  Sender: FDA-Public Use
  Company Number: EWC050142389

PATIENT
  Sex: Male

DRUGS (2)
  1. STRATTERA [Suspect]
  2. ZYPREXA [Concomitant]

REACTIONS (1)
  - COMPLETED SUICIDE [None]
